FAERS Safety Report 5661103-7 (Version None)
Quarter: 2008Q1

REPORT INFORMATION
  Report Type: 
  Country: None (occurrence: None)
  Receive Date: 20080306
  Receipt Date: 20080226
  Transmission Date: 20080703
  Serious: Yes (Other)
  Sender: FDA-Public Use
  Company Number: A0712104A

PATIENT
  Sex: Female

DRUGS (4)
  1. METHYLCELLULOSE (FORMULATION UNKNOWN) SUGAR FREE ORANGE (METHYLCELLULO [Suspect]
     Indication: CONSTIPATION
  2. METHYLCELLULOSE POWDER (METHYLCELLULOSE) [Suspect]
     Indication: CONSTIPATION
  3. DIABETES MEDICATION [Concomitant]
  4. ANTIHYPERTENSIVE [Concomitant]

REACTIONS (2)
  - BLADDER CANCER [None]
  - PHARMACEUTICAL PRODUCT COMPLAINT [None]
